FAERS Safety Report 7048597-X (Version None)
Quarter: 2010Q4

REPORT INFORMATION
  Report Type: 
  Country: None (occurrence: None)
  Receive Date: 20101018
  Receipt Date: 20100826
  Transmission Date: 20110411
  Serious: No
  Sender: FDA-Public Use
  Company Number: US-BAYER-201020633BCC

PATIENT
  Age: 21 Year
  Sex: Female
  Weight: 54 kg

DRUGS (2)
  1. MIDOL EXTENDED RELIEF CAPLETS [Suspect]
     Indication: DYSMENORRHOEA
     Dosage: AS USED: 2 DF  UNIT DOSE: 1 DF
     Route: 048
     Dates: start: 20100825
  2. BIRTH CONTROL [Concomitant]

REACTIONS (1)
  - DYSMENORRHOEA [None]
